FAERS Safety Report 23739751 (Version 1)
Quarter: 2024Q2

REPORT INFORMATION
  Report Type: Report from Study
  Country: DE (occurrence: DE)
  Receive Date: 20240414
  Receipt Date: 20240414
  Transmission Date: 20240716
  Serious: Yes (Death, Other)
  Sender: FDA-Public Use
  Company Number: DE-002147023-NVSC2021DE210772

PATIENT
  Sex: Female

DRUGS (16)
  1. BARICITINIB [Suspect]
     Active Substance: BARICITINIB
     Indication: Product used for unknown indication
     Dosage: UNK
     Route: 065
  2. ETANERCEPT [Suspect]
     Active Substance: ETANERCEPT
     Indication: Product used for unknown indication
     Dosage: 50 MG
     Route: 065
     Dates: start: 20201104, end: 202102
  3. LEFLUNOMIDE [Suspect]
     Active Substance: LEFLUNOMIDE
     Indication: Product used for unknown indication
     Dosage: 20 MG
     Route: 065
     Dates: start: 20180524
  4. LEFLUNOMIDE [Suspect]
     Active Substance: LEFLUNOMIDE
     Dosage: 20 MG
     Route: 065
     Dates: start: 20181116
  5. METHOTREXATE [Suspect]
     Active Substance: METHOTREXATE
     Indication: Product used for unknown indication
     Dosage: UNK; 15,0; T0
     Route: 065
     Dates: start: 20160629
  6. METHOTREXATE [Suspect]
     Active Substance: METHOTREXATE
     Dosage: UNK; 15,0; T1
     Route: 065
     Dates: start: 20160830
  7. METHOTREXATE [Suspect]
     Active Substance: METHOTREXATE
     Dosage: UNK; 15,0; T2
     Route: 065
     Dates: start: 20161108
  8. METHOTREXATE [Suspect]
     Active Substance: METHOTREXATE
     Dosage: UNK; 15,0; T3
     Route: 065
     Dates: start: 20170503
  9. METHOTREXATE [Suspect]
     Active Substance: METHOTREXATE
     Dosage: UNK; 15,0; T4
     Route: 065
     Dates: start: 20171106
  10. OLUMIANT [Suspect]
     Active Substance: BARICITINIB
     Indication: Product used for unknown indication
     Dosage: 4 MG
     Route: 065
     Dates: start: 201908, end: 202006
  11. RINVOQ [Suspect]
     Active Substance: UPADACITINIB
     Indication: Product used for unknown indication
     Dosage: 15 MG; T11
     Route: 065
     Dates: start: 20210616
  12. RINVOQ [Suspect]
     Active Substance: UPADACITINIB
     Dosage: 15 MG; T12
     Route: 065
     Dates: start: 20220112
  13. RINVOQ [Suspect]
     Active Substance: UPADACITINIB
     Dosage: 15 MG; T13
     Route: 065
     Dates: start: 20220810
  14. SULFASALAZINE [Suspect]
     Active Substance: SULFASALAZINE
     Indication: Product used for unknown indication
     Dosage: 2000 MG
     Route: 065
     Dates: start: 20181116
  15. SULFASALAZINE [Suspect]
     Active Substance: SULFASALAZINE
     Dosage: 2000 MG
     Route: 065
     Dates: start: 20190510
  16. SULFASALAZINE [Suspect]
     Active Substance: SULFASALAZINE
     Dosage: 2000 MG
     Route: 065
     Dates: start: 20191205

REACTIONS (2)
  - Death [Fatal]
  - Respiratory tract infection [Not Recovered/Not Resolved]

NARRATIVE: CASE EVENT DATE: 20200910
